FAERS Safety Report 17455750 (Version 6)
Quarter: 2020Q4

REPORT INFORMATION
  Report Type: Report from Study
  Country: GB (occurrence: GB)
  Receive Date: 20200225
  Receipt Date: 20201014
  Transmission Date: 20210113
  Serious: Yes (Hospitalization, Other)
  Sender: FDA-Public Use
  Company Number: NVSC2020GB046766

PATIENT
  Sex: Male

DRUGS (5)
  1. COSENTYX [Suspect]
     Active Substance: SECUKINUMAB
     Indication: PSORIATIC ARTHROPATHY
     Dosage: 300 MG, QMO (LONG TERM USE)
     Route: 058
  2. COSENTYX [Suspect]
     Active Substance: SECUKINUMAB
     Indication: ANKYLOSING SPONDYLITIS
     Dosage: 150 MG, Q2W
     Route: 058
  3. COSENTYX [Suspect]
     Active Substance: SECUKINUMAB
     Dosage: 150 MG, UNKNOWN
     Route: 058
     Dates: start: 202007
  4. LEFLUNOMIDE. [Concomitant]
     Active Substance: LEFLUNOMIDE
     Indication: ANKYLOSING SPONDYLITIS
     Dosage: 20 MG, QD
     Route: 048
     Dates: start: 202005
  5. LEFLUNOMIDE. [Concomitant]
     Active Substance: LEFLUNOMIDE
     Indication: ARTHRITIS

REACTIONS (16)
  - Polyp [Unknown]
  - Asthenia [Recovering/Resolving]
  - Productive cough [Unknown]
  - Leukaemia [Unknown]
  - Pain in extremity [Not Recovered/Not Resolved]
  - Arthralgia [Not Recovered/Not Resolved]
  - Food poisoning [Unknown]
  - Gastric disorder [Recovered/Resolved]
  - Ankylosing spondylitis [Not Recovered/Not Resolved]
  - Platelet count decreased [Unknown]
  - Swelling [Not Recovered/Not Resolved]
  - Malaise [Unknown]
  - Fatigue [Recovering/Resolving]
  - Enthesopathy [Recovering/Resolving]
  - Diarrhoea [Recovered/Resolved]
  - Campylobacter gastroenteritis [Not Recovered/Not Resolved]
